FAERS Safety Report 4747751-7 (Version None)
Quarter: 2005Q3

REPORT INFORMATION
  Report Type: 
  Country: None (occurrence: None)
  Receive Date: 20050816
  Receipt Date: 20050804
  Transmission Date: 20060218
  Serious: Yes (Hospitalization)
  Sender: FDA-Public Use
  Company Number: 200510498BFR

PATIENT
  Age: 53 Year
  Sex: Male
  Weight: 45 kg

DRUGS (20)
  1. CIPROFLOXACIN [Suspect]
     Dosage: 500 MG, BID, ORAL
     Route: 048
     Dates: start: 20050416
  2. VFEND [Suspect]
     Dosage: 200 MG, QD, ORAL
     Route: 048
     Dates: start: 20050416
  3. ALKERAN [Suspect]
     Indication: LYMPHOMA
     Dosage: 210 MG, QD, INTRAVENOUS
     Route: 042
     Dates: start: 20050404
  4. CYTARABINE [Suspect]
     Indication: LYMPHOMA
     Dosage: 610 MG, QD, INTRAVENOUS
     Route: 042
     Dates: start: 20050331, end: 20050403
  5. BICNU [Suspect]
     Indication: LYMPHOMA
     Dosage: 460 MG, TOTAL DAILY, INTRAVENOUS
     Route: 042
     Dates: start: 20050330
  6. VEPESID [Suspect]
     Indication: LYMPHOMA
     Dosage: 610 MG, TOTAL DAILY, INTRAVENOUS
     Route: 042
     Dates: start: 20050331, end: 20050403
  7. MOTILIUM [Concomitant]
  8. LOVENOX [Concomitant]
  9. SKENAN [Concomitant]
  10. GRANOCYTE [Concomitant]
  11. MABTHERA [Concomitant]
  12. ENDOXAN [Concomitant]
  13. DOXORUBICIN HCL [Concomitant]
  14. VINCRISTINE [Concomitant]
  15. PREDNISONE TAB [Concomitant]
  16. BICNU [Concomitant]
  17. VEPESID [Concomitant]
  18. ARACYTINE [Concomitant]
  19. ALKERAN [Concomitant]
  20. TIENAM [Concomitant]

REACTIONS (6)
  - ACUTE RESPIRATORY DISTRESS SYNDROME [None]
  - ASPERGILLOSIS [None]
  - BONE MARROW TRANSPLANT [None]
  - PNEUMONIA [None]
  - PULMONARY HAEMORRHAGE [None]
  - SEPSIS [None]
